FAERS Safety Report 19079243 (Version 1)
Quarter: 2021Q1

REPORT INFORMATION
  Report Type: Spontaneous
  Country: FR (occurrence: FR)
  Receive Date: 20210331
  Receipt Date: 20210331
  Transmission Date: 20210420
  Serious: Yes (Other)
  Sender: FDA-Public Use
  Company Number: FR-TEVA-2021-FR-1895462

PATIENT
  Age: 65 Year
  Sex: Male
  Weight: 54 kg

DRUGS (11)
  1. DOLIPRANE [Concomitant]
     Active Substance: ACETAMINOPHEN
  2. EZETIMIBE. [Concomitant]
     Active Substance: EZETIMIBE
  3. CEFOTAXIME [Suspect]
     Active Substance: CEFOTAXIME SODIUM
     Indication: OSTEITIS
     Dosage: 3 GRAM
     Route: 042
     Dates: start: 20201231, end: 20210103
  4. METFORMINE ARROW LAB 500 MG, COMPRIME PELLICULE [Suspect]
     Active Substance: METFORMIN HYDROCHLORIDE
     Indication: DIABETES MELLITUS
     Dosage: 2 DF
     Route: 048
     Dates: start: 20201227, end: 20210106
  5. RAMIPRIL. [Concomitant]
     Active Substance: RAMIPRIL
  6. HUMALOG [Concomitant]
     Active Substance: INSULIN LISPRO
  7. DAPTOMYCINE ACCORD [Suspect]
     Active Substance: DAPTOMYCIN
     Indication: OSTEITIS
     Dosage: 350 MG
     Route: 042
     Dates: start: 20201231, end: 20210103
  8. ATORVASTATINE [Suspect]
     Active Substance: ATORVASTATIN
     Indication: DYSLIPIDAEMIA
     Dosage: 1 DF
     Route: 048
     Dates: start: 2018
  9. BISOPROLOL (FUMARATE ACIDE DE) [Concomitant]
     Active Substance: BISOPROLOL FUMARATE
  10. TRESIBA [Concomitant]
     Active Substance: INSULIN DEGLUDEC
  11. KARDEGIC [Concomitant]
     Active Substance: ASPIRIN DL-LYSINE

REACTIONS (1)
  - Cholestasis [Recovering/Resolving]

NARRATIVE: CASE EVENT DATE: 20210103
